FAERS Safety Report 6838452-X (Version None)
Quarter: 2010Q3

REPORT INFORMATION
  Report Type: 
  Country: None (occurrence: None)
  Receive Date: 20100713
  Receipt Date: 20070608
  Transmission Date: 20110219
  Serious: No
  Sender: FDA-Public Use
  Company Number: US-PFIZER INC-2007049175

PATIENT
  Sex: Female

DRUGS (7)
  1. CHANTIX [Suspect]
     Indication: SMOKING CESSATION THERAPY
     Route: 048
     Dates: start: 20070501
  2. LEXAPRO [Concomitant]
     Indication: DEPRESSION
  3. CRESTOR [Concomitant]
  4. TRICOR [Concomitant]
  5. LISINOPRIL [Concomitant]
  6. PREVACID [Concomitant]
  7. GLUCOPHAGE [Concomitant]

REACTIONS (2)
  - NAUSEA [None]
  - TREMOR [None]
